FAERS Safety Report 10688150 (Version 1)
Quarter: 2014Q4

REPORT INFORMATION
  Report Type: Spontaneous
  Country: IN (occurrence: None)
  Receive Date: 20141231
  Receipt Date: 20141231
  Transmission Date: 20150529
  Serious: Yes (Other)
  Sender: FDA-Public Use
  Company Number: UCM201412-000259

PATIENT
  Age: 23 Year
  Sex: Male

DRUGS (1)
  1. TOPIRAMATE. [Suspect]
     Active Substance: TOPIRAMATE
     Indication: MIGRAINE
     Route: 048

REACTIONS (8)
  - Off label use [None]
  - Myopia [None]
  - Eye disorder [None]
  - Skin striae [None]
  - Ocular hyperaemia [None]
  - Vision blurred [None]
  - Retinal disorder [None]
  - Choroidal effusion [None]
